FAERS Safety Report 6220545-1 (Version None)
Quarter: 2009Q2

REPORT INFORMATION
  Report Type: 
  Country: None (occurrence: None)
  Receive Date: 20090610
  Receipt Date: 20090531
  Transmission Date: 20091009
  Serious: Yes (Hospitalization, Other)
  Sender: FDA-Public Use
  Company Number: US-AMGEN-QUU349502

PATIENT
  Sex: Female

DRUGS (2)
  1. ENBREL [Suspect]
     Indication: ANKYLOSING SPONDYLITIS
     Route: 058
     Dates: start: 20060811
  2. METHOTREXATE [Concomitant]
     Dates: start: 20060811

REACTIONS (6)
  - DEPRESSION [None]
  - HYPOAESTHESIA [None]
  - MENORRHAGIA [None]
  - PARAESTHESIA [None]
  - PULMONARY EMBOLISM [None]
  - THROMBOSIS [None]
